FAERS Safety Report 24384225 (Version 4)
Quarter: 2024Q4

REPORT INFORMATION
  Report Type: Spontaneous
  Country: US (occurrence: US)
  Receive Date: 20241001
  Receipt Date: 20241023
  Transmission Date: 20250115
  Serious: Yes (Other)
  Sender: PFIZER
  Company Number: US-PFIZER INC-202400259510

PATIENT
  Age: 83 Year
  Sex: Female

DRUGS (5)
  1. XELJANZ [Suspect]
     Active Substance: TOFACITINIB CITRATE
     Indication: Eosinophilia
     Dosage: 5 MG, 2X/DAY
     Route: 048
     Dates: start: 2024
  2. XELJANZ [Suspect]
     Active Substance: TOFACITINIB CITRATE
     Indication: Lymphocytic leukaemia
  3. XELJANZ [Suspect]
     Active Substance: TOFACITINIB CITRATE
     Indication: Gene mutation
  4. XELJANZ [Suspect]
     Active Substance: TOFACITINIB CITRATE
     Indication: Neutropenia
  5. CYCLOSPORINE [Suspect]
     Active Substance: CYCLOSPORINE
     Dosage: UNK

REACTIONS (5)
  - Malaise [Unknown]
  - Acute kidney injury [Recovering/Resolving]
  - Hypertensive nephropathy [Recovering/Resolving]
  - Off label use [Unknown]
  - Drug effective for unapproved indication [Unknown]

NARRATIVE: CASE EVENT DATE: 20240101
